FAERS Safety Report 7147525-6 (Version None)
Quarter: 2010Q4

REPORT INFORMATION
  Report Type: 
  Country: None (occurrence: None)
  Receive Date: 20101209
  Receipt Date: 20031009
  Transmission Date: 20110411
  Serious: Yes (Death, Hospitalization)
  Sender: FDA-Public Use
  Company Number: US-ACTELION-A-US2003-03490

PATIENT

DRUGS (2)
  1. BOSENTAN TABLET 125 MG US [Suspect]
     Indication: PULMONARY ARTERIAL HYPERTENSION
     Dosage: 62.5 MG, BID
     Route: 048
     Dates: start: 20020410, end: 20020511
  2. BOSENTAN TABLET 125 MG US [Suspect]
     Dosage: 125 MG, BID
     Route: 048
     Dates: start: 20020511

REACTIONS (3)
  - DEATH [None]
  - FALL [None]
  - RIB FRACTURE [None]
